FAERS Safety Report 20906157 (Version 2)
Quarter: 2022Q3

REPORT INFORMATION
  Report Type: Spontaneous
  Country: AU (occurrence: AU)
  Receive Date: 20220602
  Receipt Date: 20220729
  Transmission Date: 20221027
  Serious: Yes (Hospitalization)
  Sender: FDA-Public Use
  Company Number: AU-EXELTIS PHARMACEUTICAL HOLDING, S.L.-2205AU02076

PATIENT
  Sex: Female

DRUGS (3)
  1. DROSPIRENONE [Suspect]
     Active Substance: DROSPIRENONE
     Indication: Product used for unknown indication
     Dosage: 1 DOSAGE FORM, QD
     Dates: start: 20220421
  2. CHLORDIAZEPOXIDE;TRIFLUOPERAZINE [Concomitant]
     Indication: Product used for unknown indication
  3. PRIMROSE OIL [Concomitant]
     Indication: Product used for unknown indication

REACTIONS (3)
  - Abdominal pain [Unknown]
  - Vaginal discharge [Unknown]
  - Off label use [Unknown]

NARRATIVE: CASE EVENT DATE: 20220421
